FAERS Safety Report 11124443 (Version 2)
Quarter: 2015Q2

REPORT INFORMATION
  Report Type: Spontaneous
  Country: CO (occurrence: CO)
  Receive Date: 20150520
  Receipt Date: 20150626
  Transmission Date: 20150821
  Serious: Yes (Other)
  Sender: FDA-Public Use
  Company Number: CO-BAYER-2015-249643

PATIENT
  Age: 20 Year
  Sex: Female

DRUGS (1)
  1. MIRENA [Suspect]
     Active Substance: LEVONORGESTREL
     Indication: CONTRACEPTION
     Dosage: 20 MCG/24HR, CONT
     Route: 015
     Dates: start: 201411, end: 201506

REACTIONS (3)
  - Genital haemorrhage [Recovering/Resolving]
  - Dysmenorrhoea [Recovering/Resolving]
  - Haemorrhagic cyst [Recovering/Resolving]

NARRATIVE: CASE EVENT DATE: 201505
